FAERS Safety Report 17479348 (Version 1)
Quarter: 2020Q1

REPORT INFORMATION
  Report Type: Spontaneous
  Country: SE (occurrence: SE)
  Receive Date: 20200228
  Receipt Date: 20200228
  Transmission Date: 20200409
  Serious: Yes (Other)
  Sender: FDA-Public Use
  Company Number: SE-NOVOPROD-714135

PATIENT
  Age: 79 Year
  Sex: Female

DRUGS (1)
  1. FIASP [Suspect]
     Active Substance: INSULIN ASPART
     Indication: TYPE 1 DIABETES MELLITUS
     Dosage: 12 IU
     Route: 058
     Dates: start: 20191115, end: 20191115

REACTIONS (2)
  - Asthma [Recovered/Resolved]
  - Blister [Recovered/Resolved]

NARRATIVE: CASE EVENT DATE: 20191115
